FAERS Safety Report 6886181-9 (Version None)
Quarter: 2010Q3

REPORT INFORMATION
  Report Type: 
  Country: None (occurrence: None)
  Receive Date: 20100729
  Receipt Date: 20080806
  Transmission Date: 20110219
  Serious: Yes (Other)
  Sender: FDA-Public Use
  Company Number: US-PFIZER INC-2008066104

PATIENT
  Sex: Female
  Weight: 60 kg

DRUGS (5)
  1. CELEBREX [Suspect]
     Indication: SCIATICA
     Dates: start: 20080501
  2. IBUPROFEN [Suspect]
     Indication: PAIN
     Dates: end: 20080701
  3. PREMARIN [Concomitant]
  4. VITAMINS [Concomitant]
  5. FISH OIL [Concomitant]

REACTIONS (1)
  - BLOOD PRESSURE INCREASED [None]
